FAERS Safety Report 5066266-2 (Version None)
Quarter: 2006Q3

REPORT INFORMATION
  Report Type: 
  Country: None (occurrence: None)
  Receive Date: 20060706
  Receipt Date: 20051011
  Transmission Date: 20061208
  Serious: Yes (Hospitalization)
  Sender: FDA-Public Use
  Company Number: 2046

PATIENT
  Sex: Female

DRUGS (1)
  1. AVINZA [Suspect]
     Dosage: 30 MG DAILY PO
     Route: 048
     Dates: start: 20050101

REACTIONS (1)
  - SOMNOLENCE [None]
